FAERS Safety Report 7724108-8 (Version None)
Quarter: 2011Q3

REPORT INFORMATION
  Report Type: 
  Country: None (occurrence: None)
  Receive Date: 20110901
  Receipt Date: 20110829
  Transmission Date: 20111222
  Serious: Yes (Life-Threatening, Hospitalization)
  Sender: FDA-Public Use
  Company Number: US-B.I. PHARMACEUTICALS,INC./RIDGEFIELD-2011-BP-15386BP

PATIENT
  Sex: Female
  Weight: 57.61 kg

DRUGS (1)
  1. PRADAXA [Suspect]
     Indication: ATRIAL FIBRILLATION
     Dates: start: 20110127

REACTIONS (2)
  - LARGE INTESTINAL HAEMORRHAGE [None]
  - GASTROINTESTINAL HAEMORRHAGE [None]
